FAERS Safety Report 21084647 (Version 4)
Quarter: 2023Q1

REPORT INFORMATION
  Report Type: Spontaneous
  Country: US (occurrence: US)
  Receive Date: 20220714
  Receipt Date: 20230213
  Transmission Date: 20230418
  Serious: No
  Sender: FDA-Public Use
  Company Number: US-PFIZER INC-PV202200022778

PATIENT
  Age: 62 Year
  Sex: Female

DRUGS (1)
  1. IBRANCE [Suspect]
     Active Substance: PALBOCICLIB
     Dosage: UNK
     Dates: end: 202207

REACTIONS (6)
  - Increased appetite [Unknown]
  - Blister [Recovered/Resolved]
  - White blood cell count decreased [Unknown]
  - Hunger [Unknown]
  - Rash [Unknown]
  - Intentional product misuse [Unknown]
